FAERS Safety Report 7819999-6 (Version None)
Quarter: 2011Q4

REPORT INFORMATION
  Report Type: 
  Country: None (occurrence: None)
  Receive Date: 20111018
  Receipt Date: 20111017
  Transmission Date: 20120403
  Serious: Yes (Other)
  Sender: FDA-Public Use
  Company Number: CO-PFIZER INC-2011188373

PATIENT
  Age: 20 Year
  Sex: Female
  Weight: 46 kg

DRUGS (3)
  1. DEPO-PROVERA [Suspect]
     Indication: CONTRACEPTION
     Dosage: 150 MG, EVERY 3 MONTHS
     Route: 030
     Dates: start: 20100604, end: 20110615
  2. SULFAMETHOXAZOLE AND TRIMETHOPRIM [Interacting]
     Dosage: UNK
     Route: 048
     Dates: start: 20110329
  3. GENTAMICIN [Interacting]
     Dosage: UNK
     Dates: start: 20110329

REACTIONS (3)
  - DRUG INTERACTION [None]
  - DRUG INEFFECTIVE [None]
  - UNINTENDED PREGNANCY [None]
